FAERS Safety Report 12669103 (Version 2)
Quarter: 2016Q3

REPORT INFORMATION
  Report Type: Report from Study
  Country: US (occurrence: US)
  Receive Date: 20160819
  Receipt Date: 20160920
  Transmission Date: 20161109
  Serious: Yes (Other)
  Sender: FDA-Public Use
  Company Number: US-JNJFOC-20160813778

PATIENT
  Sex: Male

DRUGS (17)
  1. DEPAKOTE [Concomitant]
     Active Substance: DIVALPROEX SODIUM
  2. NORVASC [Concomitant]
     Active Substance: AMLODIPINE BESYLATE
  3. ABILIFY [Concomitant]
     Active Substance: ARIPIPRAZOLE
  4. HYDROCHLOROTHIAZIDE. [Concomitant]
     Active Substance: HYDROCHLOROTHIAZIDE
  5. LIPITOR [Concomitant]
     Active Substance: ATORVASTATIN CALCIUM
  6. CLONIDINE. [Concomitant]
     Active Substance: CLONIDINE
  7. HCTZ [Concomitant]
     Active Substance: HYDROCHLOROTHIAZIDE
  8. CYMBALTA [Concomitant]
     Active Substance: DULOXETINE HYDROCHLORIDE
  9. ALLOPURINOL. [Concomitant]
     Active Substance: ALLOPURINOL
  10. IMBRUVICA [Suspect]
     Active Substance: IBRUTINIB
     Indication: CHRONIC LYMPHOCYTIC LEUKAEMIA
     Route: 048
     Dates: start: 20140620
  11. NEURONTIN [Concomitant]
     Active Substance: GABAPENTIN
  12. PEPCID [Concomitant]
     Active Substance: FAMOTIDINE
  13. SEROQUEL [Concomitant]
     Active Substance: QUETIAPINE FUMARATE
  14. FLEXERIL [Concomitant]
     Active Substance: CYCLOBENZAPRINE HYDROCHLORIDE
  15. OXYCODONE [Concomitant]
     Active Substance: OXYCODONE
  16. ZOFRAN [Concomitant]
     Active Substance: ONDANSETRON HYDROCHLORIDE
  17. VASOTEC [Concomitant]
     Active Substance: ENALAPRIL MALEATE

REACTIONS (3)
  - Mental disorder [Unknown]
  - Drug dose omission [Recovered/Resolved]
  - White blood cell count decreased [Unknown]
